FAERS Safety Report 7168854-6 (Version None)
Quarter: 2010Q4

REPORT INFORMATION
  Report Type: 
  Country: None (occurrence: None)
  Receive Date: 20101216
  Receipt Date: 20100601
  Transmission Date: 20110411
  Serious: No
  Sender: FDA-Public Use
  Company Number: US-AMGEN-KDL385124

PATIENT

DRUGS (12)
  1. ENBREL [Suspect]
     Indication: PRODUCT USED FOR UNKNOWN INDICATION
     Dosage: 50 MG, QWK
     Route: 058
  2. CENTRUM SILVER [Concomitant]
  3. METHOTREXATE [Concomitant]
     Dosage: 2.5 MG, UNK
     Route: 048
  4. ACETAMINOPHEN W/ PROPOXYPHENE HCL [Concomitant]
     Dosage: 65 MG, UNK
  5. METFORMIN [Concomitant]
     Dosage: 500 MG, UNK
     Route: 048
  6. LISINOPRIL [Concomitant]
     Dosage: 2.5 MG, UNK
     Route: 048
  7. CYCLOBENZAPRINE [Concomitant]
     Dosage: 10 MG, UNK
     Route: 048
  8. HYDROCODONE [Concomitant]
  9. FOLIC ACID [Concomitant]
     Dosage: 1 MG, UNK
     Route: 048
  10. FLUOXETINE HYDROCHLORIDE [Concomitant]
     Dosage: 20 MG, UNK
     Route: 048
  11. SULINDAC [Concomitant]
     Dosage: 150 MG, UNK
     Route: 048
  12. TRAMADOL HCL [Concomitant]
     Dosage: 200 MG, UNK
     Route: 048

REACTIONS (4)
  - COUGH [None]
  - EYE DISCHARGE [None]
  - OROPHARYNGEAL PAIN [None]
  - PNEUMONIA [None]
